FAERS Safety Report 5008540-1 (Version None)
Quarter: 2006Q2

REPORT INFORMATION
  Report Type: 
  Country: None (occurrence: None)
  Receive Date: 20060518
  Receipt Date: 20060509
  Transmission Date: 20061013
  Serious: Yes (Life-Threatening)
  Sender: FDA-Public Use
  Company Number: 200610603BYL

PATIENT
  Age: 61 Year
  Sex: Male

DRUGS (2)
  1. GLUCOBAY [Suspect]
     Indication: DIABETES MELLITUS
     Dosage: TID, ORAL
     Route: 048
     Dates: end: 20060426
  2. PREDONINE [Concomitant]

REACTIONS (2)
  - INTESTINAL PERFORATION [None]
  - PNEUMATOSIS INTESTINALIS [None]
